FAERS Safety Report 9278137 (Version 1)
Quarter: 2012Q4

REPORT INFORMATION
  Report Type: Spontaneous
  Country: US (occurrence: None)
  Receive Date: 20121109
  Receipt Date: 20121109
  Transmission Date: 20130627
  Serious: Yes (Hospitalization)
  Sender: FDA-Public Use
  Company Number: 2011S1000951

PATIENT
  Age: 32 Year
  Sex: Male

DRUGS (5)
  1. CUBICIN [Suspect]
     Indication: FEVER
     Route: 042
  2. CUBICIN [Suspect]
     Indication: BLOOD CULTURE POSITIVE
     Route: 042
  3. VANCOMYCIN [Concomitant]
  4. PIPERACILLIN W/TAZOBACTAM [Concomitant]
  5. MICAFUNGIN [Concomitant]

REACTIONS (11)
  - Staphylococcal infection [None]
  - Bacteraemia [None]
  - Off label use [None]
  - Cough [None]
  - Palpitations [None]
  - Myalgia [None]
  - Thrombocytopenia [None]
  - Septic embolus [None]
  - Conjunctival haemorrhage [None]
  - Splinter haemorrhages [None]
  - Anaemia [None]
